FAERS Safety Report 4553376-9 (Version None)
Quarter: 2005Q1

REPORT INFORMATION
  Report Type: 
  Country: None (occurrence: None)
  Receive Date: 20050112
  Receipt Date: 20041222
  Transmission Date: 20050727
  Serious: Yes (Life-Threatening, Hospitalization, Disabling)
  Sender: FDA-Public Use
  Company Number: GBS041216257

PATIENT
  Age: 72 Year
  Sex: Male
  Weight: 63 kg

DRUGS (13)
  1. DOBUTAMINE HCL [Suspect]
     Indication: CARDIAC FAILURE
     Dosage: 2.5 UG/KG/MIN
     Dates: start: 20041118, end: 20041124
  2. WARFARIN SODIUM [Concomitant]
  3. PRAVASTATIN [Concomitant]
  4. AMIODARONE HCL [Concomitant]
  5. FRUSEMIDE [Concomitant]
  6. BUMETANIDE [Concomitant]
  7. ISOSORBIDE MONONITRATE [Concomitant]
  8. FOLIC ACID [Concomitant]
  9. TRIAMTERENE [Concomitant]
  10. DIGOXIN [Concomitant]
  11. METOCLOPRAMIDE [Concomitant]
  12. ORAMORPH SR [Concomitant]
  13. DIAMORPHINE [Concomitant]

REACTIONS (1)
  - NEUTROPENIC SEPSIS [None]
